FAERS Safety Report 10175885 (Version 1)
Quarter: 2014Q2

REPORT INFORMATION
  Report Type: Spontaneous
  Country: GB (occurrence: GB)
  Receive Date: 20140516
  Receipt Date: 20140516
  Transmission Date: 20141212
  Serious: Yes (Hospitalization)
  Sender: FDA-Public Use
  Company Number: GB-PERRIGO-14GB005019

PATIENT
  Age: 74 Year
  Sex: Female

DRUGS (1)
  1. DIPHENHYDRAMINE HYDROCHLORIDE 16028/0014 25 MG [Suspect]
     Indication: PRODUCT USED FOR UNKNOWN INDICATION
     Dosage: 25 MG, SINGLE
     Route: 048
     Dates: start: 2014, end: 2014

REACTIONS (5)
  - Blindness unilateral [Recovering/Resolving]
  - Headache [Recovered/Resolved]
  - Eye pain [Recovered/Resolved]
  - Glaucoma [Not Recovered/Not Resolved]
  - Corneal thickening [Not Recovered/Not Resolved]
